FAERS Safety Report 15792096 (Version 1)
Quarter: 2019Q1

REPORT INFORMATION
  Report Type: Spontaneous
  Country: CA (occurrence: CA)
  Receive Date: 20190106
  Receipt Date: 20190106
  Transmission Date: 20190417
  Serious: Yes (Other)
  Sender: FDA-Public Use
  Company Number: CA-PFIZER INC-2018536919

PATIENT
  Age: 23 Year
  Sex: Female

DRUGS (11)
  1. METHOTREXATE. [Concomitant]
     Active Substance: METHOTREXATE
     Indication: CROHN^S DISEASE
     Dosage: 25 MG, WEEKLY
     Dates: start: 201402
  2. ENTOCORT [Concomitant]
     Active Substance: BUDESONIDE
     Indication: CROHN^S DISEASE
     Dosage: 9 MG, 1X/DAY
     Dates: start: 20181114
  3. ALESSE 28 [Concomitant]
     Active Substance: ETHINYL ESTRADIOL\LEVONORGESTREL
     Dosage: 0.02-0.1 MG
     Dates: start: 20181114, end: 20181219
  4. SOLU-MEDROL [Suspect]
     Active Substance: METHYLPREDNISOLONE SODIUM SUCCINATE
     Indication: CROHN^S DISEASE
     Dosage: UNK (SHORT TERM TREATMENT)
     Dates: start: 20181220
  5. METHOTREXATE. [Concomitant]
     Active Substance: METHOTREXATE
     Dosage: 15 MG, WEEKLY
  6. APO-PREDNISONE [Concomitant]
     Active Substance: PREDNISONE
     Dosage: 5 MG, UNK
  7. ALESSE 28 [Concomitant]
     Active Substance: ETHINYL ESTRADIOL\LEVONORGESTREL
     Dosage: 0.02-0.1 MG
  8. JAMP VITAMIN D [Concomitant]
     Dosage: 1000 IU, UNK
  9. JAMP FOLIC ACID [Concomitant]
     Dosage: 5 MG, UNK
  10. CITALOPRAM [Concomitant]
     Active Substance: CITALOPRAM HYDROBROMIDE
     Dosage: 10 MG, UNK
  11. JAMP-PANTOPRAZOLE [Concomitant]
     Dosage: 40 MG, UNK

REACTIONS (4)
  - Pain [Unknown]
  - Product use in unapproved indication [Unknown]
  - Colitis [Unknown]
  - Abdominal pain [Unknown]
